FAERS Safety Report 8367008-5 (Version None)
Quarter: 2012Q2

REPORT INFORMATION
  Report Type: 
  Country: None (occurrence: None)
  Receive Date: 20120517
  Receipt Date: 20120514
  Transmission Date: 20120825
  Serious: Yes (Congenital Anomaly, Other)
  Sender: FDA-Public Use
  Company Number: PHHY2012CN040465

PATIENT
  Sex: Female
  Weight: 2.7 kg

DRUGS (1)
  1. SEBIVO [Suspect]
     Indication: HEPATITIS B
     Dosage: MATERNAL DOSE 600 MG, QD
     Route: 064
     Dates: start: 20101029

REACTIONS (3)
  - ATRIAL SEPTAL DEFECT [None]
  - UMBILICAL CORD ABNORMALITY [None]
  - FOETAL EXPOSURE DURING PREGNANCY [None]
